FAERS Safety Report 4802679-9 (Version None)
Quarter: 2005Q4

REPORT INFORMATION
  Report Type: 
  Country: None (occurrence: None)
  Receive Date: 20051014
  Receipt Date: 20050714
  Transmission Date: 20060501
  Serious: Yes (Hospitalization, Other)
  Sender: FDA-Public Use
  Company Number: 2005103509

PATIENT
  Sex: Female

DRUGS (3)
  1. NEURONTIN [Suspect]
     Indication: BIPOLAR DISORDER
  2. NEURONTIN [Suspect]
     Indication: PAIN
  3. ALL OTHER THERAPEUTIC PRODUCTS (ALL OTHER THERAPEUTIC PRODUCTS) [Suspect]
     Indication: ILL-DEFINED DISORDER

REACTIONS (3)
  - DRUG INEFFECTIVE [None]
  - OVERDOSE [None]
  - SUICIDE ATTEMPT [None]
